FAERS Safety Report 4274483-4 (Version None)
Quarter: 2004Q1

REPORT INFORMATION
  Report Type: 
  Country: None (occurrence: None)
  Receive Date: 20040120
  Receipt Date: 20020201
  Transmission Date: 20041129
  Serious: Yes (Hospitalization)
  Sender: FDA-Public Use
  Company Number: DE-ROCHE-306392

PATIENT
  Age: 65 Year
  Sex: Male
  Weight: 80.6 kg

DRUGS (17)
  1. DACLIZUMAB [Suspect]
     Route: 042
     Dates: start: 20011117, end: 20011117
  2. DACLIZUMAB [Suspect]
     Dosage: FOR A TOTAL OF FOUR DOSES.
     Route: 042
     Dates: start: 20011130, end: 20020111
  3. MYCOPHENOLATE MOFETIL [Suspect]
     Route: 048
     Dates: start: 20011117, end: 20020219
  4. MYCOPHENOLATE MOFETIL [Suspect]
     Route: 048
     Dates: start: 20020219
  5. FUROSEMIDE [Concomitant]
     Dates: start: 20011125
  6. PANTOZOL [Concomitant]
     Dates: start: 20011120
  7. COTRIM [Concomitant]
     Dates: start: 20011122
  8. CORVATON [Concomitant]
     Dates: start: 20011120
  9. SOTAHEXAL [Concomitant]
     Dates: start: 20011120
  10. NORVASC [Concomitant]
     Dates: start: 20011128
  11. ENALAPRIL MALEATE [Concomitant]
     Dates: start: 20020103
  12. ASPIRIN [Concomitant]
     Dates: start: 20020103
  13. DECORTIN-H [Concomitant]
     Dates: start: 20011120
  14. SANDIMUN [Concomitant]
     Dates: start: 20011118
  15. CYMEVEN [Concomitant]
     Dates: start: 20020206
  16. ALLOPURINOL [Concomitant]
     Dates: start: 20020204
  17. PRAVASIN [Concomitant]
     Dates: start: 20020203

REACTIONS (5)
  - CORONARY ARTERY DISEASE [None]
  - CYTOMEGALOVIRUS INFECTION [None]
  - FEMORAL ARTERIAL STENOSIS [None]
  - MYOCARDIAL INFARCTION [None]
  - VENTRICULAR DYSFUNCTION [None]
